FAERS Safety Report 7536506-6 (Version None)
Quarter: 2011Q2

REPORT INFORMATION
  Report Type: 
  Country: None (occurrence: None)
  Receive Date: 20110609
  Receipt Date: 20110602
  Transmission Date: 20111010
  Serious: Yes (Other)
  Sender: FDA-Public Use
  Company Number: US-SANOFI-AVENTIS-2011SA025859

PATIENT
  Age: 56 Year
  Sex: Female
  Weight: 122.47 kg

DRUGS (6)
  1. ATENOLOL [Concomitant]
     Indication: BLOOD PRESSURE
  2. LANTUS [Suspect]
     Indication: TYPE 2 DIABETES MELLITUS
     Dosage: DOSE:70 UNIT(S)
     Route: 058
     Dates: start: 20050101
  3. ACTOS [Concomitant]
  4. METFORMIN HYDROCHLORIDE [Concomitant]
     Dosage: 3 TO 500 MG
  5. LANTUS [Suspect]
     Indication: TYPE 2 DIABETES MELLITUS
     Dates: start: 20050101
  6. SYNTHROID [Concomitant]
     Indication: HYPOTHYROIDISM

REACTIONS (2)
  - FALL [None]
  - ANKLE FRACTURE [None]
